FAERS Safety Report 12249109 (Version 3)
Quarter: 2017Q1

REPORT INFORMATION
  Report Type: Spontaneous
  Country: US (occurrence: US)
  Receive Date: 20160408
  Receipt Date: 20170104
  Transmission Date: 20170428
  Serious: Yes (Disabling)
  Sender: FDA-Public Use
  Company Number: US-PROCTER_AND_GAMBLE-GS16039524

PATIENT
  Sex: Male
  Weight: 75.74 kg

DRUGS (1)
  1. OLD SPICE HIGH ENDURANCE ORIGINAL [Suspect]
     Active Substance: ALUMINUM ZIRCONIUM TRICHLOROHYDREX GLY
     Dosage: 1 APPLIC, 1 /DAY
     Route: 061
     Dates: start: 201602, end: 201603

REACTIONS (7)
  - Skin burning sensation [Recovered/Resolved]
  - Dermatitis atopic [Recovered/Resolved]
  - Axillary pain [Recovered/Resolved]
  - Rash erythematous [Recovered/Resolved]
  - Skin exfoliation [Recovered/Resolved]
  - Chemical burn of skin [Recovered/Resolved]
  - Skin irritation [Recovered/Resolved]

NARRATIVE: CASE EVENT DATE: 2016
